FAERS Safety Report 17869821 (Version 4)
Quarter: 2020Q3

REPORT INFORMATION
  Report Type: Spontaneous
  Country: JP (occurrence: JP)
  Receive Date: 20200608
  Receipt Date: 20200710
  Transmission Date: 20201103
  Serious: Yes (Death, Hospitalization, Disabling, Other)
  Sender: FDA-Public Use
  Company Number: JP-ASTELLAS-2020JP007613

PATIENT
  Age: 79 Year
  Sex: Male
  Weight: 51 kg

DRUGS (11)
  1. XTANDI [Suspect]
     Active Substance: ENZALUTAMIDE
     Indication: HORMONE-REFRACTORY PROSTATE CANCER
     Route: 048
     Dates: start: 20200512, end: 20200526
  2. SILODOSIN. [Concomitant]
     Active Substance: SILODOSIN
     Indication: BENIGN PROSTATIC HYPERPLASIA
     Route: 048
     Dates: start: 20200303, end: 20200526
  3. GONAX [Concomitant]
     Active Substance: DEGARELIX
     Indication: PRODUCT USED FOR UNKNOWN INDICATION
     Dosage: UNK UNK, UNKNOWN FREQ.
     Route: 065
     Dates: start: 20200204
  4. BETANIS [Concomitant]
     Active Substance: MIRABEGRON
     Indication: HYPERTONIC BLADDER
     Route: 048
     Dates: start: 20200407, end: 20200526
  5. RANMARK [Concomitant]
     Active Substance: DENOSUMAB
     Dosage: UNK, EVERY 4 WEEKS
     Route: 058
     Dates: start: 20200512, end: 20200512
  6. CASODEX [Concomitant]
     Active Substance: BICALUTAMIDE
     Indication: PRODUCT USED FOR UNKNOWN INDICATION
     Dosage: UNK UNK, UNKNOWN FREQ.
     Route: 065
     Dates: start: 20150806
  7. CASODEX [Concomitant]
     Active Substance: BICALUTAMIDE
     Dosage: UNK UNK, UNKNOWN FREQ.
     Route: 065
     Dates: start: 20200128
  8. RANMARK [Concomitant]
     Active Substance: DENOSUMAB
     Indication: METASTASES TO BONE
     Dosage: UNK, UNKNOWN FREQ.
     Route: 065
     Dates: start: 20200204
  9. LEUPLIN [Concomitant]
     Active Substance: LEUPROLIDE ACETATE
     Indication: PROSTATE CANCER
     Dosage: UNK UNK, UNKNOWN FREQ.
     Route: 065
     Dates: start: 20150910
  10. LEUPLIN [Concomitant]
     Active Substance: LEUPROLIDE ACETATE
     Dosage: UNK UNK, ONCE EVERY 12 WEEKS
     Route: 058
     Dates: start: 20200512, end: 20200512
  11. DENOTAS [Concomitant]
     Active Substance: CALCIUM CARBONATE\CHOLECALCIFEROL\MAGNESIUM CARBONATE
     Indication: PROPHYLAXIS
     Route: 048
     Dates: start: 20200204, end: 20200526

REACTIONS (1)
  - Thrombophlebitis migrans [Fatal]

NARRATIVE: CASE EVENT DATE: 20200519
